FAERS Safety Report 7693801-8 (Version None)
Quarter: 2011Q3

REPORT INFORMATION
  Report Type: 
  Country: None (occurrence: None)
  Receive Date: 20110819
  Receipt Date: 20110519
  Transmission Date: 20111222
  Serious: No
  Sender: FDA-Public Use
  Company Number: US-ALLERGAN-1106933US

PATIENT
  Age: 26 Year
  Sex: Female

DRUGS (2)
  1. LASTACAFT [Suspect]
     Indication: CONJUNCTIVITIS ALLERGIC
     Dosage: 1 GTT, UNK
     Route: 047
  2. RESTASIS [Concomitant]
     Indication: PRODUCT USED FOR UNKNOWN INDICATION
     Dosage: UNK

REACTIONS (6)
  - EYE PAIN [None]
  - EYELID OEDEMA [None]
  - EYE IRRITATION [None]
  - EYE DISCHARGE [None]
  - CONJUNCTIVAL OEDEMA [None]
  - OCULAR HYPERAEMIA [None]
